FAERS Safety Report 4517423-2 (Version None)
Quarter: 2004Q4

REPORT INFORMATION
  Report Type: 
  Country: None (occurrence: None)
  Receive Date: 20041022
  Receipt Date: 20040903
  Transmission Date: 20050328
  Serious: Yes (Other)
  Sender: FDA-Public Use
  Company Number: 2004047096

PATIENT
  Age: 48 Year
  Sex: Female

DRUGS (10)
  1. RELPAX [Suspect]
     Indication: MIGRAINE
     Dosage: 20 MG, ORAL
     Route: 048
     Dates: start: 20040101
  2. SERTRALINE HCL [Concomitant]
  3. TOPIRAMATE [Concomitant]
  4. LEVETIRACETAM [Concomitant]
  5. CONJUGATED ESTROGENS [Concomitant]
  6. LANSOPRAZOLE [Concomitant]
  7. LEVOTHYROXINE SODIUM [Concomitant]
  8. FLUTICASONE PROPIONATE [Concomitant]
  9. ENDAL (GUAIFENESIN, PHENYLEPHRINE HYDROCHLORIDE) [Concomitant]
  10. DESLORATADINE (DESLORATADINE) [Concomitant]

REACTIONS (2)
  - ERYTHEMA [None]
  - PRURITUS GENERALISED [None]
